FAERS Safety Report 13051890 (Version 4)
Quarter: 2017Q1

REPORT INFORMATION
  Report Type: Report from Study
  Country: None (occurrence: CZ)
  Receive Date: 20161221
  Receipt Date: 20170120
  Transmission Date: 20170428
  Serious: Yes (Hospitalization)
  Sender: FDA-Public Use
  Company Number: CZ-ABBVIE-16P-217-1813663-00

PATIENT
  Age: 31 Year
  Sex: Male
  Weight: 83 kg

DRUGS (40)
  1. RITUXIMAB [Suspect]
     Active Substance: RITUXIMAB
     Indication: B-CELL LYMPHOMA
     Dosage: MOST RECENT DOSE (772.5 MG) : 08 DEC 2016 AT 1035
     Route: 042
     Dates: start: 20161118
  2. TRAMADOLI  HYDROCHLORIDUM [Concomitant]
     Indication: BACK PAIN
     Dates: start: 20161119, end: 20161122
  3. CYCLOPHOSPHAMIDE. [Suspect]
     Active Substance: CYCLOPHOSPHAMIDE
     Indication: B-CELL LYMPHOMA
     Dosage: MOST RECENT DOSE (1545 MG): 08 DEC 2016 AT 1315
     Route: 042
     Dates: start: 20161118
  4. ALLOPURINOLUM [Concomitant]
     Dates: start: 20161208, end: 20161212
  5. HYDROCORTISONE. [Concomitant]
     Active Substance: HYDROCORTISONE
     Dates: start: 20161208, end: 20161208
  6. BISULEPINI HYDROCHLORIDUM [Concomitant]
     Indication: PREMEDICATION
     Dates: start: 20161118, end: 20161118
  7. BISULEPINI HYDROCHLORIDUM [Concomitant]
     Dates: start: 20161208, end: 20161208
  8. GRANISETRONUM [Concomitant]
     Indication: PROPHYLAXIS OF NAUSEA AND VOMITING
     Dates: start: 20161118, end: 20161118
  9. NORMAL SALINE [Concomitant]
     Active Substance: SODIUM CHLORIDE
     Indication: PROPHYLAXIS
     Dates: start: 20161118, end: 20161121
  10. AMOXICILLIN/CLAVULANIC ACID [Concomitant]
     Active Substance: AMOXICILLIN\CLAVULANIC ACID
     Indication: INFECTION PROPHYLAXIS
     Dates: start: 20161201, end: 20161207
  11. CYCLOPHOSPHAMIDE. [Suspect]
     Active Substance: CYCLOPHOSPHAMIDE
     Indication: DIFFUSE LARGE B-CELL LYMPHOMA
  12. PREDNISONE. [Suspect]
     Active Substance: PREDNISONE
     Indication: DIFFUSE LARGE B-CELL LYMPHOMA
  13. PREDNISONUM [Concomitant]
     Active Substance: PREDNISONE
     Indication: PREMEDICATION
     Dates: start: 20161114, end: 20161117
  14. METAMIZOLUM NATRICUM [Concomitant]
     Indication: BACK PAIN
     Dates: start: 20161115, end: 20161201
  15. OMEPRAZOLUM [Concomitant]
     Dates: start: 20161208, end: 20161212
  16. RITUXIMAB [Suspect]
     Active Substance: RITUXIMAB
     Indication: DIFFUSE LARGE B-CELL LYMPHOMA
  17. VINCRISTINE [Suspect]
     Active Substance: VINCRISTINE
     Indication: B-CELL LYMPHOMA
     Dosage: MOST RECENT DOSE (2 MG): 08 DEC 2016 AT 1305
     Route: 042
     Dates: start: 20161118
  18. VINCRISTINE [Suspect]
     Active Substance: VINCRISTINE
     Indication: DIFFUSE LARGE B-CELL LYMPHOMA
  19. PREDNISONE. [Suspect]
     Active Substance: PREDNISONE
     Indication: B-CELL LYMPHOMA
     Dosage: MOST RECENT DOSE (100 MG): 12 DEC 2016 DAYS 1-5 OF EACH 21 DAY CYCLE
     Route: 048
     Dates: start: 20161118
  20. ALLOPURINOLUM [Concomitant]
     Dates: start: 20161215, end: 20161219
  21. METAMIZOLUM NATRICUM [Concomitant]
     Dates: start: 20161219, end: 20161220
  22. ALLOPURINOLUM [Concomitant]
     Indication: PROPHYLAXIS
     Dates: start: 20161108, end: 20161201
  23. ALLOPURINOLUM [Concomitant]
  24. FILGRASTIMUM [Concomitant]
     Indication: PROPHYLAXIS
     Dates: start: 20161123, end: 20161125
  25. VENETOCLAX [Suspect]
     Active Substance: VENETOCLAX
     Indication: B-CELL LYMPHOMA
     Dosage: MOST RECENT DOSE (800 MG): 14 DEC 2016
     Route: 048
     Dates: start: 20161121
  26. VENETOCLAX [Suspect]
     Active Substance: VENETOCLAX
     Indication: DIFFUSE LARGE B-CELL LYMPHOMA
  27. DOXORUBICIN [Suspect]
     Active Substance: DOXORUBICIN
     Indication: DIFFUSE LARGE B-CELL LYMPHOMA
  28. OMEPRAZOLUM [Concomitant]
     Indication: PROPHYLAXIS
     Dates: start: 20161114, end: 20161130
  29. FILGRASTIMUM [Concomitant]
     Dates: start: 20161214, end: 20161216
  30. PARACETAMOLUM [Concomitant]
     Active Substance: ACETAMINOPHEN
     Indication: PREMEDICATION
     Dates: start: 20161118, end: 20161118
  31. PARACETAMOLUM [Concomitant]
     Active Substance: ACETAMINOPHEN
     Dates: start: 20161208, end: 20161208
  32. HYDROCORTISONE. [Concomitant]
     Active Substance: HYDROCORTISONE
     Indication: PREMEDICATION
     Dates: start: 20161118, end: 20161118
  33. LACTULOSUM [Concomitant]
     Indication: CONSTIPATION
     Dates: start: 20161120, end: 20161130
  34. OMEPRAZOLUM [Concomitant]
     Indication: PRODUCT USED FOR UNKNOWN INDICATION
     Dates: start: 20161215, end: 20161219
  35. DOXORUBICIN [Suspect]
     Active Substance: DOXORUBICIN
     Indication: B-CELL LYMPHOMA
     Dosage: MOST RECENT DOSE(103 MG):08 DEC 2016 AT 1420
     Route: 042
     Dates: start: 20161118
  36. GRANISETRONUM [Concomitant]
     Dates: start: 20161208, end: 20161208
  37. FILGRASTIMUM [Concomitant]
     Dates: start: 20161218, end: 20161219
  38. FAKTU [Concomitant]
     Indication: HAEMORRHOIDS
     Dates: start: 20161201
  39. KALTI CHLORIDUM [Concomitant]
     Indication: PRODUCT USED FOR UNKNOWN INDICATION
     Dates: start: 20161120, end: 20161121
  40. KALTI CHLORIDUM [Concomitant]
     Dates: start: 20161215, end: 20161215

REACTIONS (1)
  - Optic neuropathy [Recovered/Resolved]

NARRATIVE: CASE EVENT DATE: 20161214
